FAERS Safety Report 9162333 (Version 1)
Quarter: 2013Q1

REPORT INFORMATION
  Report Type: Report from Study
  Country: CH (occurrence: CH)
  Receive Date: 20130314
  Receipt Date: 20130314
  Transmission Date: 20140127
  Serious: Yes (Congenital Anomaly, Other)
  Sender: FDA-Public Use
  Company Number: CH-MERCK-1204USA03278

PATIENT
  Sex: Female

DRUGS (6)
  1. ZOCOR [Suspect]
     Route: 048
  2. ATORVASTATIN [Suspect]
  3. PRAVASTATIN SODIUM [Suspect]
  4. ROSUVASTATIN CALCIUM [Suspect]
  5. FLUVASTATIN SODIUM [Suspect]
  6. CERIVASTATIN SODIUM [Suspect]

REACTIONS (4)
  - Congenital anomaly [Unknown]
  - Premature labour [Unknown]
  - Abortion spontaneous [Unknown]
  - Maternal exposure during pregnancy [Recovered/Resolved]
